FAERS Safety Report 9565005 (Version 1)
Quarter: 2013Q3

REPORT INFORMATION
  Report Type: Report from Study
  Country: US (occurrence: US)
  Receive Date: 20130930
  Receipt Date: 20130930
  Transmission Date: 20140515
  Serious: Yes (Death)
  Sender: FDA-Public Use
  Company Number: US-ASTELLAS-2013US010135

PATIENT
  Age: 80 Year
  Sex: Male

DRUGS (2)
  1. ERLOTINIB TABLET [Suspect]
     Indication: LUNG CARCINOMA CELL TYPE UNSPECIFIED STAGE 0
     Dosage: 150 MG, UNKNOWN/D
     Route: 065
  2. ERLOTINIB TABLET [Suspect]
     Dosage: 100 MG, UID/QD
     Route: 065

REACTIONS (4)
  - Death [Fatal]
  - Rash [Unknown]
  - Rash [Unknown]
  - Diarrhoea [Unknown]
